FAERS Safety Report 7000007-4 (Version None)
Quarter: 2010Q3

REPORT INFORMATION
  Report Type: 
  Country: None (occurrence: None)
  Receive Date: 20100920
  Receipt Date: 20071109
  Transmission Date: 20110219
  Serious: Yes (Hospitalization)
  Sender: FDA-Public Use
  Company Number: US-ASTRAZENECA-2007UW27187

PATIENT
  Age: 26165 Day
  Sex: Female
  Weight: 85.3 kg

DRUGS (31)
  1. SEROQUEL [Suspect]
     Indication: PANIC DISORDER
     Route: 048
     Dates: start: 20021220
  2. SEROQUEL [Suspect]
     Indication: NIGHTMARE
     Route: 048
     Dates: start: 20021220
  3. SEROQUEL [Suspect]
     Route: 048
  4. SEROQUEL [Suspect]
     Route: 048
  5. PAXIL [Concomitant]
     Dates: start: 20001101, end: 20030401
  6. BUSPAR [Concomitant]
     Dates: start: 19980101
  7. DEXEDRINE [Concomitant]
     Dates: start: 19990501
  8. SERZONE [Concomitant]
     Dates: start: 19990501
  9. CELEXA [Concomitant]
     Dates: start: 20000101
  10. LAMICTAL [Concomitant]
     Dosage: 25 TO 100 MG QD
     Dates: start: 20011001, end: 20020101
  11. NEURONTIN [Concomitant]
     Dates: start: 20020101
  12. ALPRAZOLAM [Concomitant]
     Dosage: 0.5 MG 1-2/DAY AS NEEDED
     Dates: start: 20051201
  13. FLUVOXAMINE MALEATE [Concomitant]
     Indication: DEPRESSION
     Dates: start: 20010301
  14. FLUVOXAMINE MALEATE [Concomitant]
     Dates: start: 20030415
  15. AMARYL [Concomitant]
     Dates: start: 20071129
  16. GLIMEPIRIDE [Concomitant]
  17. PROCARDIA [Concomitant]
     Indication: GASTROOESOPHAGEAL REFLUX DISEASE
     Dates: start: 20030601
  18. PROCARDIA [Concomitant]
     Indication: GASTROINTESTINAL MOTILITY DISORDER
     Dates: start: 20030601
  19. PROCARDIA [Concomitant]
     Indication: OESOPHAGEAL SPASM
     Dates: start: 20030601
  20. RISPERDAL [Concomitant]
     Indication: PANIC DISORDER
     Dosage: 0.25 TO 0.5 MG
     Dates: start: 20030415
  21. RISPERDAL [Concomitant]
     Indication: DEPRESSION
     Dosage: 0.25 TO 0.5 MG
     Dates: start: 20030415
  22. XANAX [Concomitant]
     Indication: PANIC DISORDER
     Dosage: 0.5 MG, TWICE DAILY, AS REQUIRED
     Dates: start: 19990613
  23. SYNTHROID [Concomitant]
     Indication: THYROID THERAPY
     Dates: start: 19960328
  24. PROPRANOLOL [Concomitant]
     Indication: TREMOR
     Dates: start: 20041028
  25. AMBIEN [Concomitant]
     Indication: SLEEP DISORDER
     Dosage: 10 MG, 12.5 ONE TAB AS NEEDED
     Dates: start: 20041028
  26. DIGOXIN [Concomitant]
     Indication: CARDIAC DISORDER
     Dates: start: 20040712, end: 20071201
  27. TRICOR [Concomitant]
     Indication: BLOOD CHOLESTEROL
     Dates: start: 20041028
  28. CELEBREX [Concomitant]
     Indication: ARTHRITIS
     Dates: start: 20000101
  29. PREVACID [Concomitant]
     Indication: HYPERCHLORHYDRIA
  30. POTASSIUM [Concomitant]
     Indication: MINERAL SUPPLEMENTATION
     Dosage: 10-20 MEQ
     Dates: start: 20040712
  31. COUMADIN [Concomitant]
     Indication: ANTICOAGULANT THERAPY
     Dosage: 2.7-5 MG, DAILY, AS DIRECTED
     Dates: start: 19950201

REACTIONS (2)
  - PANCREATITIS [None]
  - PANCREATITIS ACUTE [None]
